FAERS Safety Report 9998125 (Version 1)
Quarter: 2014Q1

REPORT INFORMATION
  Report Type: Spontaneous
  Country: US (occurrence: US)
  Receive Date: 20140311
  Receipt Date: 20140311
  Transmission Date: 20141002
  Serious: No
  Sender: FDA-Public Use
  Company Number: US-009507513-1403USA004313

PATIENT
  Sex: Female

DRUGS (1)
  1. IMPLANON [Suspect]
     Dosage: 1 ROD UP TO 3 YEARS
     Route: 059
     Dates: start: 201212

REACTIONS (2)
  - Menorrhagia [Unknown]
  - Amenorrhoea [Unknown]
